FAERS Safety Report 9410604 (Version 2)
Quarter: 2013Q3

REPORT INFORMATION
  Report Type: Report from Study
  Country: US (occurrence: US)
  Receive Date: 20130719
  Receipt Date: 20130729
  Transmission Date: 20140515
  Serious: Yes (Hospitalization)
  Sender: FDA-Public Use
  Company Number: US-BRISTOL-MYERS SQUIBB COMPANY-19106343

PATIENT
  Age: 59 Year
  Sex: Male
  Weight: 77.2 kg

DRUGS (4)
  1. DASATINIB [Suspect]
     Indication: PANCREATIC CARCINOMA METASTATIC
     Dosage: HELD ON 06JUL2013
     Route: 048
     Dates: start: 20130629, end: 20130706
  2. FLUOROURACIL [Suspect]
     Indication: PANCREATIC CARCINOMA METASTATIC
     Dosage: BOLUS-400 MG/M2,?^C1V1^ 2400 MG/M2
     Route: 042
     Dates: start: 20130629
  3. OXALIPLATIN [Suspect]
     Indication: PANCREATIC CARCINOMA METASTATIC
     Route: 042
     Dates: start: 20130629
  4. LEUCOVORIN CALCIUM [Suspect]
     Indication: PANCREATIC CARCINOMA METASTATIC
     Route: 042
     Dates: start: 20130629

REACTIONS (7)
  - Nausea [Unknown]
  - Retching [Unknown]
  - Diarrhoea [Unknown]
  - Dehydration [Unknown]
  - Melaena [Unknown]
  - Fluid retention [Recovering/Resolving]
  - Klebsiella infection [Unknown]
